FAERS Safety Report 8394319-X (Version None)
Quarter: 2012Q2

REPORT INFORMATION
  Report Type: 
  Country: None (occurrence: None)
  Receive Date: 20120530
  Receipt Date: 20120521
  Transmission Date: 20120825
  Serious: Yes (Other)
  Sender: FDA-Public Use
  Company Number: BR-JNJFOC-20120517760

PATIENT
  Sex: Female
  Weight: 71 kg

DRUGS (2)
  1. REMICADE [Suspect]
     Indication: RHEUMATOID ARTHRITIS
     Route: 042
     Dates: start: 20100801, end: 20110801
  2. TECNOMET [Concomitant]
     Indication: RHEUMATOID ARTHRITIS
     Route: 065
     Dates: end: 20110801

REACTIONS (4)
  - DRUG-INDUCED LIVER INJURY [None]
  - LIVER FUNCTION TEST ABNORMAL [None]
  - OSTEOPENIA [None]
  - HYPERSENSITIVITY [None]
